FAERS Safety Report 20279687 (Version 1)
Quarter: 2022Q1

REPORT INFORMATION
  Report Type: Spontaneous
  Country: US (occurrence: US)
  Receive Date: 20220103
  Receipt Date: 20220103
  Transmission Date: 20220424
  Serious: Yes (Other)
  Sender: FDA-Public Use
  Company Number: US-MYLANLABS-2021M1095356

PATIENT
  Age: 76 Year
  Sex: Male
  Weight: 74.84 kg

DRUGS (8)
  1. EMSAM [Suspect]
     Active Substance: SELEGILINE
     Indication: Depression
     Dosage: 6 MILLIGRAM, QD
     Route: 062
     Dates: start: 20211112
  2. EMSAM [Suspect]
     Active Substance: SELEGILINE
     Indication: Anxiety
  3. EMSAM [Suspect]
     Active Substance: SELEGILINE
     Indication: Depression
     Dosage: 9 MILLIGRAM, QD
     Route: 062
     Dates: start: 20211203
  4. EMSAM [Suspect]
     Active Substance: SELEGILINE
     Indication: Anxiety
  5. SYNTHROID [Concomitant]
     Active Substance: LEVOTHYROXINE SODIUM
     Indication: Thyroid disorder
     Dosage: 100 MICROGRAM
  6. LITHIUM [Concomitant]
     Active Substance: LITHIUM
     Indication: Depression
     Dosage: 300 MILLIGRAM
     Dates: start: 20211217, end: 20211219
  7. ZYPREXA [Concomitant]
     Active Substance: OLANZAPINE
     Indication: Depression
     Dosage: 5 MILLIGRAM
     Dates: start: 20211203, end: 20211210
  8. ZYPREXA [Concomitant]
     Active Substance: OLANZAPINE
     Dosage: 2.5 MILLIGRAM
     Dates: start: 20211210, end: 20211216

REACTIONS (4)
  - Hallucination [Not Recovered/Not Resolved]
  - Decreased appetite [Not Recovered/Not Resolved]
  - Agitation [Not Recovered/Not Resolved]
  - Sleep disorder [Not Recovered/Not Resolved]

NARRATIVE: CASE EVENT DATE: 20211215
